FAERS Safety Report 24187775 (Version 1)
Quarter: 2024Q3

REPORT INFORMATION
  Report Type: Other
  Country: US (occurrence: US)
  Receive Date: 20240808
  Receipt Date: 20240808
  Transmission Date: 20241016
  Serious: Yes (Life-Threatening, Other)
  Sender: SUNNY PHARMTECH
  Company Number: US-SP-2024-38992815

PATIENT
  Age: 30 Year
  Sex: Female

DRUGS (2)
  1. CARBOPROST [Suspect]
     Active Substance: CARBOPROST
     Indication: Retained placenta operation
  2. MISOPROSTOL [Concomitant]
     Active Substance: MISOPROSTOL
     Dosage: 1000 MCG

REACTIONS (2)
  - Drug ineffective [Fatal]
  - Retained placenta or membranes [Recovered/Resolved]
